FAERS Safety Report 9967572 (Version 2)
Quarter: 2014Q1

REPORT INFORMATION
  Report Type: Report from Study
  Country: US (occurrence: US)
  Receive Date: 20140305
  Receipt Date: 20140305
  Transmission Date: 20141002
  Serious: Yes (Hospitalization, Other)
  Sender: FDA-Public Use
  Company Number: US-ABBVIE-13P-163-1139253-00

PATIENT
  Age: 35 Year
  Sex: Female
  Weight: 61.29 kg

DRUGS (6)
  1. HUMIRA [Suspect]
     Indication: PSORIASIS
     Dates: start: 201112, end: 201305
  2. HUMIRA [Suspect]
     Dates: start: 201306
  3. HYDROXYZINE [Concomitant]
     Indication: PSORIASIS
  4. ADVIL [Concomitant]
     Indication: MIGRAINE
  5. CYCLOBENZAPRINE [Concomitant]
     Indication: ARTHROPATHY
  6. LORATADINE [Concomitant]
     Indication: HYPERSENSITIVITY

REACTIONS (6)
  - Follicular thyroid cancer [Recovered/Resolved]
  - Papillary thyroid cancer [Recovering/Resolving]
  - Psoriasis [Recovering/Resolving]
  - Psoriasis [Recovering/Resolving]
  - Psoriasis [Recovering/Resolving]
  - Autoimmune thyroiditis [Not Recovered/Not Resolved]
